FAERS Safety Report 8804291 (Version 2)
Quarter: 2014Q2

REPORT INFORMATION
  Report Type: Spontaneous
  Country: CN (occurrence: CN)
  Receive Date: 20120924
  Receipt Date: 20140411
  Transmission Date: 20141212
  Serious: Yes (Other)
  Sender: FDA-Public Use
  Company Number: CN-JNJFOC-20120906123

PATIENT
  Age: 13 Year
  Sex: Male

DRUGS (2)
  1. REMICADE [Suspect]
     Indication: RHEUMATOID ARTHRITIS
     Route: 042
     Dates: start: 20120910, end: 20120910
  2. REMICADE [Suspect]
     Indication: RHEUMATOID ARTHRITIS
     Dosage: DOSAGE 1, INTERVAL 1 DAY
     Route: 042

REACTIONS (5)
  - Chest discomfort [Recovering/Resolving]
  - Dyspnoea [Recovering/Resolving]
  - Infusion related reaction [Recovering/Resolving]
  - Flushing [Recovering/Resolving]
  - Night sweats [Recovering/Resolving]
